FAERS Safety Report 4961915-9 (Version None)
Quarter: 2006Q2

REPORT INFORMATION
  Report Type: 
  Country: None (occurrence: None)
  Receive Date: 20060404
  Receipt Date: 20050913
  Transmission Date: 20061013
  Serious: Yes (Other)
  Sender: FDA-Public Use
  Company Number: US-MERCK-0509USA01713

PATIENT
  Age: 54 Year
  Sex: Female
  Weight: 64 kg

DRUGS (7)
  1. VIOXX [Suspect]
     Indication: ARTHRALGIA
     Route: 048
  2. VIOXX [Suspect]
     Indication: ARTHRITIS
     Route: 048
  3. MOTRIN [Concomitant]
     Route: 065
  4. TYLENOL (CAPLET) [Concomitant]
     Indication: PAIN
     Route: 065
  5. GLUCOPHAGE [Concomitant]
     Route: 065
  6. GLYBURIDE [Concomitant]
     Route: 065
  7. ATENOLOL [Concomitant]
     Route: 065

REACTIONS (3)
  - MYOCARDIAL INFARCTION [None]
  - POLYTRAUMATISM [None]
  - TRANSIENT ISCHAEMIC ATTACK [None]
